FAERS Safety Report 6187959-X (Version None)
Quarter: 2009Q2

REPORT INFORMATION
  Report Type: 
  Country: None (occurrence: None)
  Receive Date: 20090513
  Receipt Date: 20090504
  Transmission Date: 20091009
  Serious: Yes (Other)
  Sender: FDA-Public Use
  Company Number: US-ROCHE-631358

PATIENT
  Age: 27 Year
  Sex: Female

DRUGS (2)
  1. ACCUTANE [Suspect]
     Indication: DRUG USE FOR UNKNOWN INDICATION
     Route: 065
  2. ACCUTANE [Suspect]
     Route: 065

REACTIONS (2)
  - CEREBRAL CYST [None]
  - TEMPORAL LOBE EPILEPSY [None]
